FAERS Safety Report 20131236 (Version 12)
Quarter: 2022Q2

REPORT INFORMATION
  Report Type: Spontaneous
  Country: DE (occurrence: DE)
  Receive Date: 20211130
  Receipt Date: 20220615
  Transmission Date: 20220721
  Serious: Yes (Hospitalization, Other)
  Sender: FDA-Public Use
  Company Number: DE-002147023-NVSC2021DE222834

PATIENT
  Age: 74 Year
  Sex: Male

DRUGS (55)
  1. TACROLIMUS [Suspect]
     Active Substance: TACROLIMUS
     Indication: Transplant
     Dosage: 0.5 MILLIGRAM, BID
  2. TACROLIMUS [Suspect]
     Active Substance: TACROLIMUS
     Dosage: 1 MILLIGRAM, BID
  3. TACROLIMUS [Suspect]
     Active Substance: TACROLIMUS
     Dosage: UNK
  4. SODIUM BICARBONATE [Suspect]
     Active Substance: SODIUM BICARBONATE
     Indication: Product used for unknown indication
     Dosage: 1 GRAM, QD
  5. TACROLIMUS [Suspect]
     Active Substance: TACROLIMUS
     Indication: Transplant
     Dosage: 1 MILLIGRAM, QD, 0.5 MG, BID
  6. TACROLIMUS [Suspect]
     Active Substance: TACROLIMUS
     Indication: Prostate infection
     Dosage: 1 MILLIGRAM,
     Dates: end: 2018
  7. TACROLIMUS [Suspect]
     Active Substance: TACROLIMUS
     Dosage: 0.4 MILLIGRAM, QD
  8. TACROLIMUS [Suspect]
     Active Substance: TACROLIMUS
     Dosage: 1 MILLIGRAM, BID
  9. DARBEPOETIN ALFA [Suspect]
     Active Substance: DARBEPOETIN ALFA
     Indication: Product used for unknown indication
     Dosage: 10 MILLIGRAM, QW
     Dates: end: 20141210
  10. CANDESARTAN [Suspect]
     Active Substance: CANDESARTAN
     Indication: Blood pressure abnormal
     Dosage: 32 MILLIGRAM, QD
     Dates: end: 20210226
  11. SODIUM BICARBONATE [Suspect]
     Active Substance: SODIUM BICARBONATE
     Indication: Product used for unknown indication
     Dosage: 1 GRAM, QD
  12. CANDESARTAN [Suspect]
     Active Substance: CANDESARTAN
     Indication: Blood pressure abnormal
     Dosage: 32 MILLIGRAM, QD
     Dates: end: 202102
  13. CANDESARTAN [Suspect]
     Active Substance: CANDESARTAN
     Dosage: 32 MILLIGRAM, QD
     Dates: end: 20210226
  14. DOXAZOSIN [Suspect]
     Active Substance: DOXAZOSIN MESYLATE
     Indication: Blood pressure abnormal
     Dosage: 2 DF (8 MG), QD
  15. DOXAZOSIN [Suspect]
     Active Substance: DOXAZOSIN MESYLATE
     Indication: Hypertension
     Dosage: 16 MILLIGRAM, QD,8 MG, BID (RETARD)SUSTAINED RELEASE
  16. DOXAZOSIN [Suspect]
     Active Substance: DOXAZOSIN MESYLATE
     Dosage: 8 MILLIGRAM, 8 MG (2 AND 1/2)
  17. DOXAZOSIN [Suspect]
     Active Substance: DOXAZOSIN MESYLATE
     Dosage: 4 MILLIGRAM,4 MG (1/2-2-2-0)
  18. DOXAZOSIN [Suspect]
     Active Substance: DOXAZOSIN MESYLATE
     Dosage: 8 MG, BID (0-2-0-0)
  19. DOXAZOSIN [Suspect]
     Active Substance: DOXAZOSIN MESYLATE
     Dosage: 16 MILLIGRAM
  20. DOXAZOSIN [Suspect]
     Active Substance: DOXAZOSIN MESYLATE
     Dosage: 8 MG, BID (0-1-0-1)
  21. PANTOPRAZOLE [Suspect]
     Active Substance: PANTOPRAZOLE
     Indication: Abdominal discomfort
     Dosage: 20 MILLIGRAM, QD START DATE MAY-2017
     Dates: end: 201705
  22. NITRENDIPINE [Suspect]
     Active Substance: NITRENDIPINE
     Indication: Blood pressure abnormal
     Dosage: 20 MILLIGRAM, QD, 10 MG, BID
  23. NITRENDIPINE [Suspect]
     Active Substance: NITRENDIPINE
     Dosage: 40 MILLIGRAM, QD, 20 MG, BID
  24. NITRENDIPINE [Suspect]
     Active Substance: NITRENDIPINE
     Dosage: 2 DOSAGE FORM, QD,2 DF (20 MG), QD
  25. NITRENDIPINE [Suspect]
     Active Substance: NITRENDIPINE
     Dosage: 40 MILLIGRAM, QD, 20 MG, BID
  26. NITRENDIPINE [Suspect]
     Active Substance: NITRENDIPINE
     Dosage: 20 MG (IN THE MORNING AFTER ABOUT 1 TO 2 HOURS)
  27. NITRENDIPINE [Suspect]
     Active Substance: NITRENDIPINE
     Dosage: 10 MILLIGRAM
  28. FLUVASTATIN [Suspect]
     Active Substance: FLUVASTATIN SODIUM
     Indication: Blood cholesterol
     Dosage: UNK
  29. CARVEDILOL [Suspect]
     Active Substance: CARVEDILOL
     Indication: Blood pressure abnormal
     Dosage: 25 MILLIGRAM, QD
  30. CARVEDILOL [Suspect]
     Active Substance: CARVEDILOL
     Dosage: 25 MILLIGRAM, QD
  31. CARVEDILOL [Suspect]
     Active Substance: CARVEDILOL
     Dosage: 25 MG, (1/2 -0-0)
  32. CARVEDILOL [Suspect]
     Active Substance: CARVEDILOL
     Dosage: 25 MG, QD (0-0-1-0)
  33. CARVEDILOL [Suspect]
     Active Substance: CARVEDILOL
     Dosage: 25 MG, (1/2 -0-0)
  34. FUROSEMIDE [Suspect]
     Active Substance: FUROSEMIDE
     Indication: Fluid retention
     Dosage: 40 MILLIGRAM, 40 MG, PRN
  35. TORSEMIDE [Suspect]
     Active Substance: TORSEMIDE
     Indication: Product used for unknown indication
     Dosage: 0.5 DOSAGE FORM
  36. MARCUMAR [Suspect]
     Active Substance: PHENPROCOUMON
     Indication: Product used for unknown indication
     Dosage: 0.5 DOSAGE FORM
  37. MARCUMAR [Suspect]
     Active Substance: PHENPROCOUMON
     Dosage: UNK, (0-0-1/2-0 -1)
  38. MARCUMAR [Suspect]
     Active Substance: PHENPROCOUMON
     Dosage: UNK
  39. TAMSULOSIN [Suspect]
     Active Substance: TAMSULOSIN
     Indication: Prostate infection
     Dosage: 0.4 MILLIGRAM, QD
  40. CHOLECALCIFEROL [Suspect]
     Active Substance: CHOLECALCIFEROL
     Indication: Product used for unknown indication
     Dosage: UNK
  41. AMPHOTERICIN B [Suspect]
     Active Substance: AMPHOTERICIN B
     Indication: Product used for unknown indication
     Dosage: 3 DOSAGE FORM, QD, 1 DF, TID START DATE 29-JUL-2014
     Dates: end: 20140729
  42. FERROUS GLYCINE SULFATE [Suspect]
     Active Substance: FERROUS GLYCINE SULFATE
     Indication: Product used for unknown indication
     Dosage: 100 MILLIGRAM, QD START DATE 10-JUN-2015
  43. MYFORTIC [Suspect]
     Active Substance: MYCOPHENOLATE SODIUM
     Indication: Transplant
     Dosage: 2 DOSAGE FORM, QD, 1 DF, BID
  44. HYGROTON [Suspect]
     Active Substance: CHLORTHALIDONE
     Indication: Blood pressure abnormal
     Dosage: 0.5 DOSAGE FORM, QD
  45. CALCIUM CARBONATE\CHOLECALCIFEROL [Suspect]
     Active Substance: CALCIUM CARBONATE\CHOLECALCIFEROL
     Indication: Product used for unknown indication
     Dosage: 2 DOSAGE FORM, QD
     Dates: end: 20170729
  46. VALCYTE [Suspect]
     Active Substance: VALGANCICLOVIR HYDROCHLORIDE
     Indication: Product used for unknown indication
     Dosage: 450 MILLIGRAM, QD
     Dates: end: 20140801
  47. DIGITOXIN [Suspect]
     Active Substance: DIGITOXIN
     Indication: Cardiac disorder
     Dosage: 1 DOSAGE FORM, QD,1 DF, QD(NOT ON SUNDAYS)
  48. COTRIMOXAZOLE [Suspect]
     Active Substance: SULFAMETHOXAZOLE\TRIMETHOPRIM
     Indication: Product used for unknown indication
     Dosage: 480 MILLIGRAM
     Dates: end: 20140401
  49. TAMSULOSIN HYDROCHLORIDE [Suspect]
     Active Substance: TAMSULOSIN HYDROCHLORIDE
     Indication: Prostate infection
     Dosage: 0.4 MILLIGRAM, QD
  50. MINOXIDIL [Suspect]
     Active Substance: MINOXIDIL
     Indication: Blood pressure management
     Dosage: UNK, TID, 2.5
  51. VALGANCICLOVIR [Suspect]
     Active Substance: VALGANCICLOVIR
     Indication: Product used for unknown indication
     Dosage: UNK
  52. CANDESARTAN CILEXETIL [Suspect]
     Active Substance: CANDESARTAN CILEXETIL
     Indication: Product used for unknown indication
     Dosage: UNK
  53. SODIUM BICARBONATE [Suspect]
     Active Substance: SODIUM BICARBONATE
     Indication: Product used for unknown indication
     Dosage: UNK
  54. ARANESP [Suspect]
     Active Substance: DARBEPOETIN ALFA
     Indication: Product used for unknown indication
     Dosage: UNK
  55. PROGRAF [Suspect]
     Active Substance: TACROLIMUS
     Indication: Product used for unknown indication
     Dosage: UNK

REACTIONS (68)
  - Renal cyst haemorrhage [Not Recovered/Not Resolved]
  - Blood pressure fluctuation [Not Recovered/Not Resolved]
  - Aortic arteriosclerosis [Unknown]
  - Left ventricular hypertrophy [Unknown]
  - Spinal stenosis [Unknown]
  - Carotid arteriosclerosis [Unknown]
  - Swelling [Unknown]
  - Arteriosclerosis [Unknown]
  - Hepatic steatosis [Unknown]
  - Chronic kidney disease [Unknown]
  - Spinal osteoarthritis [Unknown]
  - Thrombosis [Unknown]
  - Basal cell carcinoma [Recovered/Resolved]
  - Pulmonary hypertension [Unknown]
  - Bradycardia [Unknown]
  - Atrial fibrillation [Unknown]
  - Squamous cell carcinoma of skin [Recovered/Resolved]
  - Delayed graft function [Unknown]
  - Gastrooesophageal reflux disease [Unknown]
  - Intraductal papillary mucinous neoplasm [Unknown]
  - Hypertension [Unknown]
  - Diverticulum intestinal [Unknown]
  - Oedema peripheral [Unknown]
  - Aortic dilatation [Unknown]
  - Presyncope [Unknown]
  - Vertigo [Unknown]
  - Atrioventricular block [Unknown]
  - Metabolic acidosis [Unknown]
  - Activated partial thromboplastin time prolonged [Unknown]
  - Dizziness [Unknown]
  - Benign prostatic hyperplasia [Unknown]
  - Rectal prolapse [Unknown]
  - Blood potassium increased [Unknown]
  - Red blood cell count decreased [Recovered/Resolved]
  - C-reactive protein increased [Unknown]
  - SARS-CoV-2 antibody test positive [Unknown]
  - Mean cell volume increased [Recovered/Resolved]
  - Hepatosplenomegaly [Unknown]
  - Haemoglobin decreased [Recovered/Resolved]
  - Hyperparathyroidism [Unknown]
  - Haemorrhoids [Unknown]
  - Actinic keratosis [Unknown]
  - Myalgia [Unknown]
  - Vascular anastomotic haemorrhage [Unknown]
  - Fear [Unknown]
  - Complications of transplanted kidney [Unknown]
  - Abdominal wall haemorrhage [Unknown]
  - Blood 25-hydroxycholecalciferol decreased [Recovered/Resolved]
  - Restless legs syndrome [Unknown]
  - Vascular compression [Unknown]
  - COVID-19 [Unknown]
  - Haemorrhage [Unknown]
  - Aortic valve incompetence [Unknown]
  - Renal artery stenosis [Unknown]
  - Vena cava injury [Unknown]
  - Glycosylated haemoglobin increased [Unknown]
  - Perineal cyst [Unknown]
  - Incorrect dose administered [Unknown]
  - Overdose [Unknown]
  - Restlessness [Unknown]
  - Large intestine polyp [Unknown]
  - Vitamin D decreased [Recovered/Resolved]
  - Insomnia [Unknown]
  - Headache [Unknown]
  - Swelling of eyelid [Unknown]
  - Swelling face [Unknown]
  - Renal cyst [Unknown]
  - Drug ineffective [Unknown]

NARRATIVE: CASE EVENT DATE: 20130401
